FAERS Safety Report 7560878-X (Version None)
Quarter: 2011Q2

REPORT INFORMATION
  Report Type: 
  Country: None (occurrence: None)
  Receive Date: 20110620
  Receipt Date: 20110620
  Transmission Date: 20111010
  Serious: Yes (Disabling)
  Sender: FDA-Public Use
  Company Number: None

PATIENT
  Age: 79 Year
  Sex: Female
  Weight: 61.2356 kg

DRUGS (2)
  1. ENABLEX [Suspect]
     Indication: POLLAKIURIA
     Dosage: 7.5 DAILY PO
     Route: 048
     Dates: start: 20110325, end: 20110613
  2. ENABLEX [Suspect]
     Indication: URINARY INCONTINENCE
     Dosage: 7.5 DAILY PO
     Route: 048
     Dates: start: 20110325, end: 20110613

REACTIONS (9)
  - OEDEMA PERIPHERAL [None]
  - SKIN DISCOLOURATION [None]
  - CONTUSION [None]
  - VESSEL PUNCTURE SITE HAEMATOMA [None]
  - VESSEL PUNCTURE SITE REACTION [None]
  - VESSEL PUNCTURE SITE SWELLING [None]
  - PAIN IN EXTREMITY [None]
  - MUSCULOSKELETAL STIFFNESS [None]
  - YELLOW SKIN [None]
